FAERS Safety Report 7473849-9 (Version None)
Quarter: 2011Q2

REPORT INFORMATION
  Report Type: 
  Country: None (occurrence: None)
  Receive Date: 20110511
  Receipt Date: 20110504
  Transmission Date: 20111010
  Serious: Yes (Other)
  Sender: FDA-Public Use
  Company Number: BR-PFIZER INC-2011095981

PATIENT
  Age: 25 Year
  Sex: Female

DRUGS (4)
  1. DEPO-PROVERA [Suspect]
     Indication: CONTRACEPTION
     Dosage: 150 MG, EVERY 3 MONTHS
     Route: 030
     Dates: start: 20060101, end: 20110503
  2. LYRICA [Suspect]
     Dosage: 75 MG, 2X/DAY
     Route: 048
  3. LYRICA [Suspect]
     Dosage: 75 MG, UNK
     Route: 048
     Dates: start: 20090101
  4. LYRICA [Suspect]
     Dosage: 150 MG, UNK
     Route: 048

REACTIONS (9)
  - ACCIDENT AT WORK [None]
  - FALL [None]
  - INTERVERTEBRAL DISC PROTRUSION [None]
  - ABDOMINAL PAIN UPPER [None]
  - GASTRIC DISORDER [None]
  - INCORRECT DOSE ADMINISTERED [None]
  - LIPOMA OF BREAST [None]
  - METRORRHAGIA [None]
  - AMENORRHOEA [None]
